FAERS Safety Report 9936366 (Version 1)
Quarter: 2014Q1

REPORT INFORMATION
  Report Type: Spontaneous
  Country: US (occurrence: US)
  Receive Date: 20140228
  Receipt Date: 20140228
  Transmission Date: 20141002
  Serious: No
  Sender: FDA-Public Use
  Company Number: US-AMGEN-USASP2014003490

PATIENT
  Age: 63 Year
  Sex: Female

DRUGS (3)
  1. ENBREL [Suspect]
     Indication: RHEUMATOID ARTHRITIS
     Dosage: 50 MG, QWK
     Route: 065
     Dates: start: 20050608, end: 20140101
  2. METHOTREXATE [Concomitant]
     Dosage: UNK MG, QWK
     Route: 048
  3. PLAQUENIL                          /00072603/ [Concomitant]
     Dosage: 400 MG, DAILY
     Route: 048

REACTIONS (4)
  - Drug ineffective [Recovered/Resolved]
  - Inflammation [Recovered/Resolved]
  - Pain [Recovered/Resolved]
  - Musculoskeletal stiffness [Recovered/Resolved]
